FAERS Safety Report 16712992 (Version 2)
Quarter: 2025Q2

REPORT INFORMATION
  Report Type: Report from Study
  Country: PL (occurrence: PL)
  Receive Date: 20190817
  Receipt Date: 20250623
  Transmission Date: 20250717
  Serious: Yes (Other)
  Sender: AUROBINDO
  Company Number: PL-AUROBINDO-AUR-APL-2019-053869

PATIENT
  Age: 6 Year
  Sex: Female

DRUGS (22)
  1. LEVETIRACETAM [Suspect]
     Active Substance: LEVETIRACETAM
     Indication: Frontal lobe epilepsy
     Route: 065
  2. LEVETIRACETAM [Suspect]
     Active Substance: LEVETIRACETAM
     Route: 065
  3. LEVETIRACETAM [Suspect]
     Active Substance: LEVETIRACETAM
     Route: 065
  4. TOPIRAMATE [Suspect]
     Active Substance: TOPIRAMATE
     Indication: Frontal lobe epilepsy
     Route: 065
  5. TOPIRAMATE [Suspect]
     Active Substance: TOPIRAMATE
     Route: 065
  6. LAMOTRIGINE [Suspect]
     Active Substance: LAMOTRIGINE
     Indication: Frontal lobe epilepsy
     Route: 065
  7. PHENYTOIN [Suspect]
     Active Substance: PHENYTOIN
     Indication: Frontal lobe epilepsy
     Route: 048
  8. PHENYTOIN [Suspect]
     Active Substance: PHENYTOIN
     Route: 048
  9. PHENYTOIN [Suspect]
     Active Substance: PHENYTOIN
     Indication: Frontal lobe epilepsy
     Route: 042
  10. DIAZEPAM [Suspect]
     Active Substance: DIAZEPAM
     Indication: Frontal lobe epilepsy
     Route: 065
  11. CLONAZEPAM [Suspect]
     Active Substance: CLONAZEPAM
     Indication: Frontal lobe epilepsy
     Route: 065
  12. PHENOBARBITAL [Suspect]
     Active Substance: PHENOBARBITAL
     Indication: Frontal lobe epilepsy
     Route: 065
  13. PHENOBARBITAL [Suspect]
     Active Substance: PHENOBARBITAL
     Route: 065
  14. OXCARBAZEPINE [Suspect]
     Active Substance: OXCARBAZEPINE
     Indication: Frontal lobe epilepsy
     Route: 065
  15. COSYNTROPIN [Suspect]
     Active Substance: COSYNTROPIN
     Indication: Frontal lobe epilepsy
     Route: 030
  16. VALPROIC ACID [Suspect]
     Active Substance: VALPROIC ACID
     Indication: Frontal lobe epilepsy
     Route: 065
  17. VIGABATRIN [Suspect]
     Active Substance: VIGABATRIN
     Indication: Frontal lobe epilepsy
     Route: 065
  18. CLOBAZAM [Suspect]
     Active Substance: CLOBAZAM
     Indication: Frontal lobe epilepsy
     Route: 065
  19. CARBAMAZEPINE [Suspect]
     Active Substance: CARBAMAZEPINE
     Indication: Frontal lobe epilepsy
     Route: 065
  20. CARBAMAZEPINE [Suspect]
     Active Substance: CARBAMAZEPINE
     Route: 065
  21. LACOSAMIDE [Suspect]
     Active Substance: LACOSAMIDE
     Indication: Frontal lobe epilepsy
     Route: 065
  22. LIDOCAINE [Concomitant]
     Active Substance: LIDOCAINE
     Indication: Frontal lobe epilepsy
     Route: 042

REACTIONS (1)
  - Drug resistance [Unknown]
